FAERS Safety Report 5246758-3 (Version None)
Quarter: 2007Q1

REPORT INFORMATION
  Report Type: 
  Country: None (occurrence: None)
  Receive Date: 20070220
  Receipt Date: 20070205
  Transmission Date: 20070707
  Serious: Yes (Death)
  Sender: FDA-Public Use
  Company Number: MEDI-0005222

PATIENT
  Age: 53 Year
  Sex: Male

DRUGS (3)
  1. ETHYOL [Suspect]
     Indication: NEOPLASM MALIGNANT
     Dosage: 500 MG, 1 IN 1 D, SUBCUTANEOUS
     Route: 058
     Dates: start: 20050405, end: 20050408
  2. INTENSITY MODULATED RADIATION THERAPY [Concomitant]
  3. CISPLATIN [Concomitant]

REACTIONS (5)
  - DIZZINESS [None]
  - FATIGUE [None]
  - NAUSEA [None]
  - PNEUMONIA [None]
  - VOMITING [None]
